FAERS Safety Report 9232779 (Version 1)
Quarter: 2013Q2

REPORT INFORMATION
  Report Type: Spontaneous
  Country: AE (occurrence: AE)
  Receive Date: 20130416
  Receipt Date: 20130416
  Transmission Date: 20140414
  Serious: Yes (Hospitalization, Other)
  Sender: FDA-Public Use
  Company Number: AE-JNJFOC-20130406125

PATIENT
  Age: 28 Year
  Sex: Female
  Weight: 104.7 kg

DRUGS (1)
  1. STELARA [Suspect]
     Indication: PSORIASIS
     Route: 058
     Dates: start: 20130224, end: 20130324

REACTIONS (1)
  - Hypersensitivity [Recovered/Resolved]
